FAERS Safety Report 10136375 (Version 2)
Quarter: 2014Q2

REPORT INFORMATION
  Report Type: Spontaneous
  Country: US (occurrence: None)
  Receive Date: 20140425
  Receipt Date: 20140502
  Transmission Date: 20141212
  Serious: Yes (Other)
  Sender: FDA-Public Use
  Company Number: 2014P1003473

PATIENT
  Age: 42 Year
  Sex: Female

DRUGS (6)
  1. MYORISAN [Suspect]
     Indication: ACNE
     Route: 048
     Dates: start: 20140324, end: 20140410
  2. MULTIVITAMINS [Concomitant]
  3. LEXAPRO [Concomitant]
  4. OMEPRAZOLE [Concomitant]
  5. WELLBUTRIN [Concomitant]
  6. ZYRTEC [Concomitant]

REACTIONS (4)
  - Arthralgia [None]
  - Depression [None]
  - Arthralgia [None]
  - Condition aggravated [None]
